FAERS Safety Report 4676966-1 (Version None)
Quarter: 2005Q2

REPORT INFORMATION
  Report Type: 
  Country: None (occurrence: None)
  Receive Date: 20050526
  Receipt Date: 20050524
  Transmission Date: 20051028
  Serious: Yes (Hospitalization, Disabling, Other)
  Sender: FDA-Public Use
  Company Number: 2013357

PATIENT
  Age: 27 Year
  Sex: Male
  Weight: 52.6 kg

DRUGS (50)
  1. OXYCONTIN [Suspect]
     Dosage: MG
     Dates: start: 20000112
  2. POTASSIUM ACETATE [Concomitant]
  3. REGLAN [Concomitant]
  4. DEMEROL [Concomitant]
  5. LORTAB [Concomitant]
  6. PREDNISONE [Concomitant]
  7. METHADONE HCL [Concomitant]
  8. LORCET-HD [Concomitant]
  9. ATIVAN [Concomitant]
  10. PHENAZOPYRIDINE HYDROCHLORIDE (PHENAZOPYRIDINE HYDROCHLORIDE) [Concomitant]
  11. LEVAQUIN [Concomitant]
  12. CIPRO [Concomitant]
  13. CHLORDIAZEPOXIDE [Concomitant]
  14. DOSS [Concomitant]
  15. TYLOX (OXYCODONE TEREPHTHALATE) [Concomitant]
  16. PROZAC [Concomitant]
  17. AUGMENTIN 500 (AMOXICILLIN TRIHYDRATE, CLAVULANATE POTASSIUM) [Concomitant]
  18. DIFLUCAN [Concomitant]
  19. PRINCIPEN 500 (AMPICILLIN) OINTMENT [Concomitant]
  20. MAXAIR [Concomitant]
  21. PROCTOFOAM-HC (PRAMOCAINE HYDROCHLORIDE) [Concomitant]
  22. XANAX [Concomitant]
  23. ROBITUSSIN   ROBINS [Concomitant]
  24. HEPARIN [Concomitant]
  25. PRILOSEC [Concomitant]
  26. ZANOFLEX (ZANAFLEX) (TIZANIDINE HYDROCHLORIDE) [Concomitant]
  27. NEURONTIN [Concomitant]
  28. EFFEXOR [Concomitant]
  29. FLEXERIL [Concomitant]
  30. DALMANE [Concomitant]
  31. NAFCILLIN (NAFCILLIN) [Concomitant]
  32. RESTORIL [Concomitant]
  33. PRIMAXIN [Concomitant]
  34. ZOFRAN [Concomitant]
  35. OXYCODONE (OXYCODONE) [Concomitant]
  36. HYDROCODONE [Concomitant]
  37. TYLENOL (CAPLET) [Concomitant]
  38. NORFLEX [Concomitant]
  39. SEPTRA [Concomitant]
  40. LIBRIUM   ICN   (CHLORDIAZEPOXIDE) [Concomitant]
  41. VALIUM [Concomitant]
  42. BENTYL [Concomitant]
  43. CARAFATE [Concomitant]
  44. GENTAMICIN [Concomitant]
  45. COMPAZINE [Concomitant]
  46. COLACE [Concomitant]
  47. SEPROZOLAM [Concomitant]
  48. NUTRITIONAL SUPPLEMENTS [Concomitant]
  49. TPN [Concomitant]
  50. ALBUSOL [Concomitant]

REACTIONS (88)
  - ABDOMINAL PAIN [None]
  - ABDOMINAL PAIN LOWER [None]
  - ABNORMAL BEHAVIOUR [None]
  - ANAEMIA [None]
  - ANURIA [None]
  - ANXIETY [None]
  - ARTHRALGIA [None]
  - ASTHENIA [None]
  - BACK PAIN [None]
  - BACTERIAL INFECTION [None]
  - BLOOD ELECTROLYTES ABNORMAL [None]
  - BRONCHITIS [None]
  - BURNING SENSATION [None]
  - CATHETER RELATED INFECTION [None]
  - CENTRAL LINE INFECTION [None]
  - CHEST PAIN [None]
  - CHILLS [None]
  - CHOLELITHIASIS [None]
  - CONDITION AGGRAVATED [None]
  - CONSTIPATION [None]
  - CROHN'S DISEASE [None]
  - DEEP VEIN THROMBOSIS [None]
  - DEHYDRATION [None]
  - DEMYELINATION [None]
  - DEPRESSION [None]
  - DIARRHOEA [None]
  - DIZZINESS [None]
  - DRUG ABUSER [None]
  - DRUG ADMINISTRATION ERROR [None]
  - DRUG DEPENDENCE [None]
  - DRUG INEFFECTIVE [None]
  - DRUG TOLERANCE [None]
  - DRUG WITHDRAWAL SYNDROME [None]
  - DYSARTHRIA [None]
  - DYSURIA [None]
  - EMOTIONAL DISORDER [None]
  - EMOTIONAL DISTRESS [None]
  - ERECTILE DYSFUNCTION [None]
  - GALLBLADDER DISORDER [None]
  - GASTROINTESTINAL DISORDER [None]
  - GASTROINTESTINAL HAEMORRHAGE [None]
  - GENERAL NUTRITION DISORDER [None]
  - GENERAL PHYSICAL HEALTH DETERIORATION [None]
  - HEADACHE [None]
  - HEPATIC FUNCTION ABNORMAL [None]
  - HEPATOCELLULAR DAMAGE [None]
  - HYPERTENSION [None]
  - HYPOCALCAEMIA [None]
  - HYPOKALAEMIA [None]
  - ILEUS [None]
  - INTESTINAL OBSTRUCTION [None]
  - LABORATORY TEST ABNORMAL [None]
  - LETHARGY [None]
  - MENTAL DISORDER [None]
  - MENTAL DISORDER DUE TO A GENERAL MEDICAL CONDITION [None]
  - MUSCLE ATROPHY [None]
  - NAUSEA [None]
  - NERVOUSNESS [None]
  - NEUROPATHY PERIPHERAL [None]
  - OEDEMA PERIPHERAL [None]
  - OTITIS MEDIA [None]
  - PAIN [None]
  - PAIN IN EXTREMITY [None]
  - PARAESTHESIA [None]
  - PARAPLEGIA [None]
  - PERNICIOUS ANAEMIA [None]
  - PNEUMONIA [None]
  - POLYNEUROPATHY [None]
  - PSEUDOMONAL SEPSIS [None]
  - PSEUDOMONAS INFECTION [None]
  - PSYCHOPATHIC PERSONALITY [None]
  - PYREXIA [None]
  - REFUSAL OF TREATMENT BY PATIENT [None]
  - REGURGITATION OF FOOD [None]
  - RENAL FAILURE [None]
  - SELF-INDUCED VOMITING [None]
  - SELF-MEDICATION [None]
  - SEPSIS [None]
  - SHORT-BOWEL SYNDROME [None]
  - SHOULDER PAIN [None]
  - SINUS TACHYCARDIA [None]
  - SUICIDAL IDEATION [None]
  - SWELLING FACE [None]
  - THIRST [None]
  - THROMBOSIS [None]
  - URINARY TRACT INFECTION [None]
  - VOMITING [None]
  - WEIGHT DECREASED [None]
